FAERS Safety Report 7592328 (Version 8)
Quarter: 2013Q1

REPORT INFORMATION
  Report Type: Spontaneous
  Country: DE (occurrence: DE)
  Receive Date: 20100917
  Receipt Date: 20130118
  Transmission Date: 20140127
  Serious: Yes (Hospitalization, Other)
  Sender: FDA-Public Use
  Company Number: QUU438331

PATIENT
  Age: 71 Year
  Sex: Female
  Weight: 90 kg

DRUGS (35)
  1. ARANESP (DARBEPOETIN ALFA) [Suspect]
     Route: 058
     Dates: start: 200910, end: 201007
  2. PHENPROCOUMON (PHENPROCOUMON) [Concomitant]
  3. AMLODIPINE (AMLODIPINE) [Concomitant]
  4. METOPROLOL (METOPROLOL) [Concomitant]
  5. CARVEDILOL (CARVEDILOL) [Concomitant]
  6. ENALAPRIL [Concomitant]
  7. DIGOXIN (DIGOXIN) [Concomitant]
  8. THYROXINE (THYROXINE) [Concomitant]
  9. METFORMIN (METFORMIN) [Concomitant]
  10. GLIMEPIRIDE (GLIMEPIRIDE) [Concomitant]
  11. FUROSEMIDE (FUROSEMIDE) [Concomitant]
  12. PRAVASTATIN (PRAVASTATIN) [Concomitant]
  13. THEOPHYLLINE (THEOPHYLLINE) [Concomitant]
  14. ALLOPURINOL [Concomitant]
     Dosage: 150 MG, UNK
  15. FERROUS SULFATE (FERROUS SULFATE) [Concomitant]
  16. PANTOPRAZOLE (PANTOPRAZOLE) [Concomitant]
  17. OXIS (OXIS) [Concomitant]
  18. BUDESONIDE (BUDESONIDE) [Concomitant]
  19. TIOTROPIUM BROMIDE (TIOTROPIUM BROMIDE) [Concomitant]
  20. WOBENZYME (WOBENZYME) [Concomitant]
  21. VITAMINS [Concomitant]
  22. GARLIC (GARLIC) [Concomitant]
  23. HERBAL SUPPLEMENT (HERBAL SUPPLEMENT) [Concomitant]
  24. SIMVASTATIN (SIMVASTATIN) [Concomitant]
  25. ENOXAPARIN (ENOXAPARIN) [Concomitant]
  26. HEPARIN (HEPARIN) [Concomitant]
  27. INSULIN (INSULIN) [Concomitant]
  28. PROTAPHANE MC (PROTAPHANE MC) [Concomitant]
  29. NOVORAPID FLEXPEN (NOVORAPID FLEXPEN) [Concomitant]
  30. LISINOPRIL (LISINOPRIL) [Concomitant]
  31. METAMIZOLE SODIUM (METAMIZOLE SODIUM) [Concomitant]
  32. CYANOCOBALAMIN (CYANOCOBALAMIN) [Concomitant]
  33. CARDIOVASCULAR SYSTEM DRUGS (CARDIOVASCULAR SYSTEM DRUGS) [Concomitant]
  34. TRAMADOL HYDROCHLORIDE (TRAMADOL HYDROCHLORIDE) [Concomitant]
  35. METAMIZOLE (METAMIZOLE) [Concomitant]

REACTIONS (22)
  - Refractory cytopenia with unilineage dysplasia [Unknown]
  - RECTAL HAEMORRHAGE [Recovered/Resolved]
  - LEFT VENTRICULAR FAILURE [Unknown]
  - RIGHT VENTRICULAR FAILURE [Recovering/Resolving]
  - PLEURAL EFFUSION [Recovering/Resolving]
  - VAGINAL ABSCESS [Unknown]
  - CARDIOACTIVE DRUG LEVEL INCREASED [Unknown]
  - HYPOPNOEA [Unknown]
  - ANAEMIA [Unknown]
  - APLASIA PURE RED CELL [Recovering/Resolving]
  - ANTI-ERYTHROPOIETIN ANTIBODY POSITIVE [Not Recovered/Not Resolved]
  - NEUTRALISING ANTIBODIES POSITIVE [Not Recovered/Not Resolved]
  - MUSCLE TWITCHING [Unknown]
  - GASTRITIS EROSIVE [Unknown]
  - CYSTITIS [Unknown]
  - Large intestine polyp [Unknown]
  - ANAL FISSURE [Unknown]
  - HAEMORRHOIDS [Unknown]
  - VARICOSE VEIN [Unknown]
  - PAIN [Unknown]
  - HEPATIC ENZYME INCREASED [Unknown]
  - FATIGUE [Unknown]
